FAERS Safety Report 8671278 (Version 3)
Quarter: 2012Q4

REPORT INFORMATION
  Report Type: Report from Study
  Country: DE (occurrence: DE)
  Receive Date: 20120718
  Receipt Date: 20121114
  Transmission Date: 20130627
  Serious: Yes (Hospitalization)
  Sender: FDA-Public Use
  Company Number: PHHY2012DE059889

PATIENT
  Age: 50 Year
  Sex: Male
  Weight: 95 kg

DRUGS (9)
  1. FTY 720 [Suspect]
     Indication: MULTIPLE SCLEROSIS
     Dosage: 0.5 mg, QD
     Route: 048
     Dates: start: 20120711, end: 20120711
  2. AMLODIPINE [Concomitant]
     Indication: HYPERTENSION
     Dosage: 10 mg, QD
     Route: 048
  3. ALDACTONE [Concomitant]
     Indication: HYPERTENSION
     Dosage: 25 mg, QD
     Route: 048
  4. EDARBI [Concomitant]
     Indication: HYPERTENSION
     Dosage: 40 mg, QD
     Route: 048
  5. VENLAFAXINE RETARD [Concomitant]
     Indication: DEPRESSION
     Dosage: 150 mg, QD
     Route: 048
  6. VIGIL [Concomitant]
     Indication: MULTIPLE SCLEROSIS
     Dosage: 100 mg, QD
     Route: 048
  7. GABAPENTIN [Concomitant]
     Indication: MULTIPLE SCLEROSIS
     Dosage: 300 mg, QD
     Route: 048
  8. FAMPRIDINE [Concomitant]
     Indication: MULTIPLE SCLEROSIS
     Dosage: 20 mg, QD
     Route: 048
  9. ANTIHYPERTENSIVES [Concomitant]

REACTIONS (2)
  - Electrocardiogram T wave inversion [Recovered/Resolved]
  - Fatigue [Unknown]
